FAERS Safety Report 15891851 (Version 1)
Quarter: 2019Q1

REPORT INFORMATION
  Report Type: Spontaneous
  Country: FR (occurrence: FR)
  Receive Date: 20190130
  Receipt Date: 20190130
  Transmission Date: 20190417
  Serious: Yes (Other)
  Sender: FDA-Public Use
  Company Number: FR-PROVELL PHARMACEUTICALS-2061952

PATIENT
  Age: 51 Year
  Sex: Male
  Weight: 100 kg

DRUGS (1)
  1. EUTHYROX [Suspect]
     Active Substance: LEVOTHYROXINE SODIUM
     Indication: HYPOTHYROIDISM
     Route: 048
     Dates: start: 201711

REACTIONS (1)
  - Vertigo [Not Recovered/Not Resolved]

NARRATIVE: CASE EVENT DATE: 201711
